FAERS Safety Report 21032119 (Version 1)
Quarter: 2022Q3

REPORT INFORMATION
  Report Type: Spontaneous
  Country: US (occurrence: None)
  Receive Date: 20220701
  Receipt Date: 20220701
  Transmission Date: 20221027
  Serious: Yes (Other)
  Sender: FDA-Public Use
  Company Number: US-ROCHE-3125442

PATIENT
  Sex: Male

DRUGS (9)
  1. XOLAIR [Suspect]
     Active Substance: OMALIZUMAB
     Indication: Asthma
     Route: 058
     Dates: start: 20200501
  2. XOLAIR [Suspect]
     Active Substance: OMALIZUMAB
  3. XOLAIR [Suspect]
     Active Substance: OMALIZUMAB
  4. AMOXICILLIN [Concomitant]
     Active Substance: AMOXICILLIN
  5. BACTRIM [Concomitant]
     Active Substance: SULFAMETHOXAZOLE\TRIMETHOPRIM
  6. BIAXIN [Concomitant]
     Active Substance: CLARITHROMYCIN
  7. DOXYCYCLINE [Concomitant]
     Active Substance: DOXYCYCLINE
  8. NIASPAN ER [Concomitant]
     Active Substance: NIACIN
  9. NIACIN [Concomitant]
     Active Substance: NIACIN

REACTIONS (1)
  - Quality of life decreased [Unknown]
